FAERS Safety Report 19987986 (Version 4)
Quarter: 2022Q1

REPORT INFORMATION
  Report Type: Spontaneous
  Country: BR (occurrence: BR)
  Receive Date: 20211022
  Receipt Date: 20220124
  Transmission Date: 20220423
  Serious: Yes (Death, Life-Threatening, Hospitalization, Other)
  Sender: FDA-Public Use
  Company Number: BR-BRISTOL-MYERS SQUIBB COMPANY-BMS-2021-108348

PATIENT
  Age: 64 Year
  Sex: Female

DRUGS (10)
  1. OPDIVO [Suspect]
     Active Substance: NIVOLUMAB
     Indication: Acral lentiginous melanoma stage IV
     Dosage: 480 MILLIGRAM, Q4WK
     Route: 042
     Dates: start: 202107
  2. AMLODIPINE BESYLATE [Concomitant]
     Active Substance: AMLODIPINE BESYLATE
     Indication: Product used for unknown indication
     Route: 065
  3. ONDANSETRON HYDROCHLORIDE [Concomitant]
     Active Substance: ONDANSETRON HYDROCHLORIDE
     Indication: Product used for unknown indication
     Route: 065
  4. METOCLOPRAMIDE [Concomitant]
     Active Substance: METOCLOPRAMIDE
     Indication: Product used for unknown indication
     Route: 065
  5. UNSPECIFIED INGREDIENT [Concomitant]
     Active Substance: UNSPECIFIED INGREDIENT
     Indication: Product used for unknown indication
     Route: 065
  6. PANTOPRAZOLE [Concomitant]
     Active Substance: PANTOPRAZOLE
     Indication: Product used for unknown indication
     Route: 065
  7. BROMOPRIDE [Concomitant]
     Active Substance: BROMOPRIDE
     Indication: Product used for unknown indication
     Route: 065
  8. CITALOPRAM [Concomitant]
     Active Substance: CITALOPRAM HYDROBROMIDE
     Indication: Product used for unknown indication
     Route: 065
  9. DIPYRONE [Concomitant]
     Active Substance: DIPYRONE
     Indication: Product used for unknown indication
     Route: 065
  10. ENOXAPARIN SODIUM [Concomitant]
     Active Substance: ENOXAPARIN SODIUM
     Indication: Anticoagulant therapy
     Route: 065

REACTIONS (6)
  - Embolism [Fatal]
  - Malignant neoplasm progression [Fatal]
  - Pulmonary embolism [Unknown]
  - Nausea [Unknown]
  - Muscular weakness [Unknown]
  - Therapy non-responder [Unknown]

NARRATIVE: CASE EVENT DATE: 20211012
